FAERS Safety Report 5497403-3 (Version None)
Quarter: 2007Q4

REPORT INFORMATION
  Report Type: 
  Country: None (occurrence: None)
  Receive Date: 20071025
  Receipt Date: 20070322
  Transmission Date: 20080405
  Serious: No
  Sender: FDA-Public Use
  Company Number: US-BRISTOL-MYERS SQUIBB COMPANY-13722285

PATIENT
  Age: 32 Year
  Sex: Female

DRUGS (3)
  1. GLUCOPHAGE XR [Suspect]
  2. CLOMID [Concomitant]
  3. OVIDREL [Concomitant]

REACTIONS (1)
  - ALOPECIA [None]
